FAERS Safety Report 6111699 (Version 2)
Quarter: 2012Q4

REPORT INFORMATION
  Report Type: 
  Country: ES (occurrence: ES)
  Receive Date: 20060821
  Receipt Date: 20121207
  Transmission Date: 20130627
  Serious: Yes (Hospitalization)
  Sender: FDA-Public Use
  Company Number: ES-JNJFOC-20060804410

PATIENT
  Age: 39 Year
  Sex: Male

DRUGS (6)
  1. IBUPROFEN [Suspect]
     Indication: PAIN
     Route: 048
     Dates: start: 20060401, end: 20060408
  2. CLINDAMYCIN HYDROCHLORIDE [Suspect]
     Indication: HIV INFECTION
     Route: 048
     Dates: start: 200506, end: 20060507
  3. NEVIRAPINE [Suspect]
     Indication: HIV INFECTION
     Route: 048
     Dates: start: 200506, end: 20060507
  4. LAMIVUDINE [Suspect]
     Indication: HIV INFECTION
     Route: 048
     Dates: start: 200506, end: 20060507
  5. TENOFOVIR [Suspect]
     Indication: HIV INFECTION
     Route: 048
     Dates: start: 200506, end: 20060507
  6. AMOXICILLIN [Suspect]
     Indication: CELLULITIS
     Route: 048
     Dates: start: 20060401, end: 20060415

REACTIONS (1)
  - Hepatitis cholestatic [Recovered/Resolved]
